FAERS Safety Report 9550079 (Version 1)
Quarter: 2013Q3

REPORT INFORMATION
  Report Type: Spontaneous
  Country: US (occurrence: US)
  Receive Date: 20130924
  Receipt Date: 20130924
  Transmission Date: 20140515
  Serious: Yes (Other)
  Sender: FDA-Public Use
  Company Number: US-JNJFOC-20130911396

PATIENT
  Age: 45 Year
  Sex: Male

DRUGS (4)
  1. PREZISTA [Suspect]
     Indication: HIV INFECTION
     Route: 065
  2. RITONAVIR [Suspect]
     Indication: HIV INFECTION
     Route: 065
  3. RALTEGRAVIR [Suspect]
     Indication: HIV INFECTION
     Route: 065
  4. COMBIVIR [Suspect]
     Indication: HIV INFECTION
     Route: 065

REACTIONS (1)
  - Liver function test abnormal [Unknown]
